FAERS Safety Report 9305229 (Version 2)
Quarter: 2013Q3

REPORT INFORMATION
  Report Type: Spontaneous
  Country: FR (occurrence: None)
  Receive Date: 20130520
  Receipt Date: 20130805
  Transmission Date: 20140515
  Serious: Yes (Hospitalization)
  Sender: FDA-Public Use
  Company Number: SYM-2013-03854

PATIENT
  Age: 5 Year
  Sex: Male

DRUGS (3)
  1. FLAGYL [Suspect]
     Indication: BRAIN ABSCESS
     Route: 042
     Dates: start: 20130325, end: 20130515
  2. CEFOTAXIME (CEFOTAXIME)(2 GM, UNKNOWN)(CEFOTAXIME) [Suspect]
     Indication: BRAIN ABSCESS
     Route: 042
     Dates: start: 20130325, end: 20130515
  3. FOSFOMYCIN [Concomitant]

REACTIONS (1)
  - Neutropenia [None]
